FAERS Safety Report 4361436-0 (Version None)
Quarter: 2004Q2

REPORT INFORMATION
  Report Type: 
  Country: None (occurrence: None)
  Receive Date: 20040517
  Receipt Date: 20040504
  Transmission Date: 20050107
  Serious: No
  Sender: FDA-Public Use
  Company Number: 04H-163-0259918-00

PATIENT
  Age: 39 Year
  Sex: Female

DRUGS (2)
  1. MAGNESIUM SULFATE [Suspect]
     Dosage: INTRAVENOUS; SEE IMAGE
     Route: 042
     Dates: end: 20040405
  2. MAGNESIUM SULFATE [Suspect]
     Dosage: INTRAVENOUS; SEE IMAGE
     Route: 042
     Dates: start: 20040404

REACTIONS (5)
  - BLOOD MAGNESIUM INCREASED [None]
  - DEPRESSED LEVEL OF CONSCIOUSNESS [None]
  - DRUG EXPOSURE DURING PREGNANCY [None]
  - DYSARTHRIA [None]
  - SOMNOLENCE [None]
